FAERS Safety Report 8350074 (Version 3)
Quarter: 2012Q4

REPORT INFORMATION
  Report Type: 
  Country: BR (occurrence: BR)
  Receive Date: 20120124
  Receipt Date: 20121008
  Transmission Date: 20130627
  Serious: Yes (Death, Hospitalization, Other)
  Sender: FDA-Public Use
  Company Number: BR-AMGEN-BRASP2012003480

PATIENT
  Age: 52 Year
  Sex: Female
  Weight: 87 kg

DRUGS (9)
  1. ENBREL [Suspect]
     Indication: RHEUMATOID ARTHRITIS
     Dosage: 25mg , 2x/week
     Route: 058
     Dates: start: 201110
  2. ARAVA [Concomitant]
     Dosage: UNK
  3. METHOTREXATE [Concomitant]
     Dosage: UNK
  4. PRELONE [Concomitant]
     Dosage: 7 mg, UNK
  5. FOLIC ACID [Concomitant]
     Dosage: 5 mg, UNK
  6. VITAMIN B12                        /00056201/ [Concomitant]
     Dosage: 500 ug, UNK
  7. VITAMIN D /00107901/ [Concomitant]
     Dosage: 800 IU, UNK
  8. PYRIDOXINE [Concomitant]
     Dosage: 25 mg, UNK
  9. DEPURA [Concomitant]
     Dosage: UNK

REACTIONS (8)
  - Coma [Unknown]
  - Sciatica [Unknown]
  - Infection [Unknown]
  - Heart rate decreased [Unknown]
  - Pneumonia [Fatal]
  - Injection site pruritus [Unknown]
  - Abdominal abscess [Unknown]
  - Abscess intestinal [Unknown]
